FAERS Safety Report 9290775 (Version 1)
Quarter: 2013Q2

REPORT INFORMATION
  Report Type: Spontaneous
  Country: US (occurrence: US)
  Receive Date: 20130515
  Receipt Date: 20130515
  Transmission Date: 20140414
  Serious: No
  Sender: FDA-Public Use
  Company Number: US-PFIZER INC-2013145879

PATIENT
  Age: 64 Year
  Sex: Female
  Weight: 79 kg

DRUGS (3)
  1. LEVOTHYROXINE SODIUM [Suspect]
     Indication: HYPOTHYROIDISM
     Dosage: UNK
  2. SIMVASTATIN [Concomitant]
     Dosage: 40 MG, UNK
  3. ATENOLOL [Concomitant]
     Dosage: 25 MG, UNK

REACTIONS (1)
  - Hypertrichosis [Unknown]
